FAERS Safety Report 23595481 (Version 1)
Quarter: 2024Q1

REPORT INFORMATION
  Report Type: Spontaneous
  Country: US (occurrence: None)
  Receive Date: 20240304
  Receipt Date: 20240304
  Transmission Date: 20240410
  Serious: Yes (Death)
  Sender: FDA-Public Use
  Company Number: None

PATIENT
  Age: 81 Year
  Sex: Female

DRUGS (11)
  1. TAGRISSO [Suspect]
     Active Substance: OSIMERTINIB
     Indication: Non-small cell lung cancer
     Dosage: OTHER QUANTITY : 1-80 MG TABLET;?FREQUENCY : DAILY;?
     Route: 048
     Dates: start: 20210903
  2. FUROSEMIDE [Concomitant]
     Active Substance: FUROSEMIDE
  3. ENALAPRIL [Concomitant]
     Active Substance: ENALAPRIL
  4. FERROUS FUMARATE [Concomitant]
     Active Substance: FERROUS FUMARATE
  5. HUMALOG [Concomitant]
     Active Substance: INSULIN LISPRO
  6. JANUVIA [Concomitant]
     Active Substance: SITAGLIPTIN PHOSPHATE
  7. LANTUS [Concomitant]
     Active Substance: INSULIN GLARGINE
  8. PROPRANOLOL [Concomitant]
     Active Substance: PROPRANOLOL HYDROCHLORIDE
  9. VITAMIN B12 [Concomitant]
     Active Substance: CYANOCOBALAMIN
  10. VITAMIN C [Concomitant]
     Active Substance: ASCORBIC ACID
  11. VITAMIN D [Concomitant]
     Active Substance: VITAMIN D NOS

REACTIONS (2)
  - Lung neoplasm malignant [None]
  - Cardiac failure [None]

NARRATIVE: CASE EVENT DATE: 20240228
